FAERS Safety Report 5736180-5 (Version None)
Quarter: 2008Q2

REPORT INFORMATION
  Report Type: 
  Country: None (occurrence: None)
  Receive Date: 20080509
  Receipt Date: 20080509
  Transmission Date: 20081010
  Serious: Yes (Hospitalization)
  Sender: FDA-Public Use
  Company Number: None

PATIENT
  Age: 63 Year
  Sex: Male
  Weight: 48 kg

DRUGS (1)
  1. ENOXAPARIN SODIUM [Suspect]
     Indication: ACUTE CORONARY SYNDROME
     Dosage: 60 MG EVERY DAY SQ
     Route: 058
     Dates: start: 20080214, end: 20080215

REACTIONS (2)
  - ANGIOEDEMA [None]
  - THROMBOCYTOPENIA [None]
